FAERS Safety Report 6414467-0 (Version None)
Quarter: 2009Q4

REPORT INFORMATION
  Report Type: 
  Country: None (occurrence: None)
  Receive Date: 20091021
  Receipt Date: 20091006
  Transmission Date: 20100525
  Serious: Yes (Death)
  Sender: FDA-Public Use
  Company Number: 2009BM000250

PATIENT
  Age: 10 Year
  Sex: Female

DRUGS (3)
  1. NAGLAZYME [Suspect]
     Indication: MUCOPOLYSACCHARIDOSIS VI
     Dosage: IVDRP
     Route: 041
     Dates: start: 20070601, end: 20091005
  2. NAGLAZYME [Suspect]
  3. NAGLAZYME [Suspect]

REACTIONS (1)
  - ACUTE RESPIRATORY FAILURE [None]
